FAERS Safety Report 20206279 (Version 1)
Quarter: 2021Q4

REPORT INFORMATION
  Report Type: Spontaneous
  Country: US (occurrence: US)
  Receive Date: 20211220
  Receipt Date: 20211220
  Transmission Date: 20220303
  Serious: Yes (Life-Threatening, Hospitalization, Other)
  Sender: FDA-Public Use
  Company Number: US-UCBSA-2021057833

PATIENT
  Age: 10 Year
  Sex: Male
  Weight: 40.8 kg

DRUGS (3)
  1. NAYZILAM [Suspect]
     Active Substance: MIDAZOLAM
     Indication: Seizure
     Dosage: TWO DOSES
     Route: 045
     Dates: start: 20210222, end: 20210222
  2. CANNABIDIOL [Suspect]
     Active Substance: CANNABIDIOL
     Indication: Fragile X syndrome
     Dosage: 500 MILLIGRAM, 2X/DAY (BID)
     Route: 062
     Dates: start: 20200408
  3. SERTRALINE [Concomitant]
     Active Substance: SERTRALINE HYDROCHLORIDE
     Indication: Anxiety
     Dosage: 20MG DAILY
     Route: 048
     Dates: start: 20190308

REACTIONS (3)
  - Status epilepticus [Recovered/Resolved]
  - Respiratory failure [Recovered/Resolved]
  - SARS-CoV-2 test negative [Unknown]

NARRATIVE: CASE EVENT DATE: 20210222
